FAERS Safety Report 9125979 (Version 2)
Quarter: 2013Q2

REPORT INFORMATION
  Report Type: Spontaneous
  Country: DE (occurrence: DE)
  Receive Date: 20130228
  Receipt Date: 20130426
  Transmission Date: 20140414
  Serious: Yes (Other)
  Sender: FDA-Public Use
  Company Number: DE-AMGEN-DEUSP2013013392

PATIENT
  Sex: Female

DRUGS (1)
  1. ENBREL [Suspect]
     Indication: RHEUMATIC DISORDER
     Dosage: UNK

REACTIONS (1)
  - Endocarditis [Unknown]
